FAERS Safety Report 23483630 (Version 4)
Quarter: 2024Q3

REPORT INFORMATION
  Report Type: Spontaneous
  Country: US (occurrence: US)
  Receive Date: 20240205
  Receipt Date: 20240703
  Transmission Date: 20241017
  Serious: No
  Sender: PFIZER
  Company Number: US-PFIZER INC-PV202300172343

PATIENT
  Age: 81 Year
  Sex: Female
  Weight: 50.7 kg

DRUGS (4)
  1. XALKORI [Suspect]
     Active Substance: CRIZOTINIB
     Indication: Anaplastic large cell lymphoma T- and null-cell types
     Dosage: 250 MG (ORIGINAL DOSE, CYCLE 1)
     Dates: start: 202103
  2. XALKORI [Suspect]
     Active Substance: CRIZOTINIB
     Dosage: 200 MG, 2X/DAY (IN THE MORNING AND AT BEDTIME)
     Route: 048
     Dates: start: 202103
  3. XALKORI [Suspect]
     Active Substance: CRIZOTINIB
     Dosage: 200 MG
  4. XALKORI [Suspect]
     Active Substance: CRIZOTINIB
     Dosage: 200 MG, TAKE 7 CAPSULE BY MOUTH IN AM AND BEDTIME, DAILY
     Route: 048

REACTIONS (5)
  - Confusional state [Unknown]
  - Neoplasm progression [Unknown]
  - Off label use [Unknown]
  - Drug effective for unapproved indication [Unknown]
  - Product prescribing error [Unknown]

NARRATIVE: CASE EVENT DATE: 20210301
